FAERS Safety Report 23263264 (Version 1)
Quarter: 2023Q4

REPORT INFORMATION
  Report Type: Spontaneous
  Country: US (occurrence: None)
  Receive Date: 20231204
  Receipt Date: 20231204
  Transmission Date: 20240110
  Serious: Yes (Disabling)
  Sender: FDA-Public Use
  Company Number: None

PATIENT
  Age: 68 Year
  Sex: Male

DRUGS (9)
  1. RYBELSUS [Suspect]
     Active Substance: SEMAGLUTIDE
     Indication: Diabetes mellitus
     Dosage: OTHER QUANTITY : 30 TABLET(S);?
     Route: 048
     Dates: start: 20230715, end: 20231001
  2. METFORMIN [Concomitant]
  3. FENOFIBRATE [Concomitant]
  4. OMEPRAZOLE [Concomitant]
     Active Substance: OMEPRAZOLE
  5. AMLODIPINE [Concomitant]
  6. LOSARTAN [Concomitant]
     Active Substance: LOSARTAN
  7. Aspirin [Concomitant]
  8. NAPROXEN [Concomitant]
  9. Citrizene [Concomitant]

REACTIONS (7)
  - Dysgeusia [None]
  - Sinus disorder [None]
  - Drug ineffective [None]
  - Therapy cessation [None]
  - Dysphagia [None]
  - Weight decreased [None]
  - Impaired quality of life [None]

NARRATIVE: CASE EVENT DATE: 20230915
